FAERS Safety Report 5836335-5 (Version None)
Quarter: 2008Q3

REPORT INFORMATION
  Report Type: 
  Country: None (occurrence: None)
  Receive Date: 20080807
  Receipt Date: 20080710
  Transmission Date: 20090109
  Serious: No
  Sender: FDA-Public Use
  Company Number: US-JNJFOC-20080703172

PATIENT
  Age: 56 Year
  Sex: Female
  Weight: 84.82 kg

DRUGS (5)
  1. INVEGA [Suspect]
     Indication: BIPOLAR DISORDER
     Route: 048
  2. VALPROIC ACID [Concomitant]
     Indication: BIPOLAR DISORDER
     Route: 048
  3. AMBIEN [Concomitant]
     Indication: SLEEP DISORDER THERAPY
     Route: 048
  4. MOBIC [Concomitant]
     Indication: ARTHRITIS
     Route: 048
  5. GABAPENTIN [Concomitant]
     Indication: DRUG USE FOR UNKNOWN INDICATION
     Route: 048

REACTIONS (2)
  - BURNING SENSATION [None]
  - HYPOAESTHESIA [None]
